FAERS Safety Report 8624222-9 (Version None)
Quarter: 2012Q3

REPORT INFORMATION
  Report Type: 
  Country: None (occurrence: None)
  Receive Date: 20120827
  Receipt Date: 20120816
  Transmission Date: 20120928
  Serious: Yes (Hospitalization)
  Sender: FDA-Public Use
  Company Number: ES-ASTRAZENECA-2012SE56502

PATIENT
  Age: 77 Year
  Sex: Female

DRUGS (6)
  1. SEROQUEL [Suspect]
     Indication: RESTLESSNESS
     Route: 048
     Dates: start: 20120719, end: 20120722
  2. LEVOFLOXACIN [Suspect]
     Indication: INFECTION
     Route: 042
     Dates: start: 20120719, end: 20120722
  3. TORADOL [Suspect]
     Indication: ANALGESIC THERAPY
     Route: 042
     Dates: start: 20120719
  4. OMEPRAZOLE [Suspect]
     Indication: PROPHYLAXIS
     Route: 048
     Dates: start: 20110603, end: 20120722
  5. NOLOTIL [Suspect]
     Indication: ANALGESIC THERAPY
     Route: 048
     Dates: start: 20120711, end: 20120722
  6. RIFAMPIN (RIFADIN) [Suspect]
     Indication: INFECTION
     Route: 042
     Dates: start: 20120719, end: 20120722

REACTIONS (3)
  - STATUS EPILEPTICUS [None]
  - HYPOMAGNESAEMIA [None]
  - HYPOKALAEMIA [None]
